FAERS Safety Report 9896122 (Version 2)
Quarter: 2014Q1

REPORT INFORMATION
  Report Type: Spontaneous
  Country: US (occurrence: US)
  Receive Date: 20140213
  Receipt Date: 20140213
  Transmission Date: 20141002
  Serious: Yes (Other)
  Sender: FDA-Public Use
  Company Number: US-BRISTOL-MYERS SQUIBB COMPANY-19680057

PATIENT
  Age: 49 Year
  Sex: Female

DRUGS (10)
  1. ABATACEPT SUBQ INJECTION 125MG/ML [Suspect]
     Indication: RHEUMATOID ARTHRITIS
     Dosage: 1DF: 125MG/ML?6 DOSES WEEKLY?STOPPED AFTER 8TH DOSE
     Route: 058
     Dates: start: 201308
  2. CALCIUM [Concomitant]
  3. MAGNESIUM [Concomitant]
  4. OMEGA-3 [Concomitant]
  5. FOLIC ACID [Concomitant]
     Route: 048
  6. HYDROXYCHLOROQUINE [Concomitant]
  7. METHOTREXATE [Concomitant]
     Route: 048
  8. SULFASALAZINE [Concomitant]
     Route: 048
  9. BENADRYL [Concomitant]
  10. CHONDROITIN SULFATE + GLUCOSAMINE [Concomitant]
     Dosage: ONE TABLET

REACTIONS (9)
  - Blister [Unknown]
  - Pharyngeal oedema [Unknown]
  - Dyspnoea [Unknown]
  - Pruritus [Unknown]
  - Eye pruritus [Unknown]
  - Chest pain [Not Recovered/Not Resolved]
  - Mouth ulceration [Not Recovered/Not Resolved]
  - Ear congestion [Not Recovered/Not Resolved]
  - Visual impairment [Unknown]
